FAERS Safety Report 4517067-2 (Version None)
Quarter: 2004Q4

REPORT INFORMATION
  Report Type: 
  Country: None (occurrence: None)
  Receive Date: 20041202
  Receipt Date: 20041025
  Transmission Date: 20050328
  Serious: Yes (Death, Hospitalization, Other)
  Sender: FDA-Public Use
  Company Number: PHEH2004US11465

PATIENT
  Age: 54 Year
  Sex: Female

DRUGS (19)
  1. TYLENOL (CAPLET) [Concomitant]
  2. ATROVENT [Concomitant]
  3. ALBUTEROL [Concomitant]
  4. ULTRAM [Concomitant]
  5. PROTONIX [Concomitant]
  6. ZELNORM [Suspect]
     Indication: INTESTINAL HYPOMOTILITY
     Dosage: UNK, UNK
  7. ZELNORM [Suspect]
     Dosage: 2 MG, BID
     Route: 048
     Dates: start: 20040912, end: 20041023
  8. WARFARIN SODIUM [Suspect]
  9. PROMETHAZINE [Concomitant]
  10. MAGNESIUM OXIDE [Concomitant]
  11. ZOFRAN [Concomitant]
  12. DARVOCET-N 100 [Concomitant]
  13. TRAMADOL [Concomitant]
  14. COMPAZINE [Concomitant]
  15. POTASSIUM [Concomitant]
  16. REGLAN [Concomitant]
  17. ATIVAN [Concomitant]
  18. SOMA [Concomitant]
  19. ANTIBIOTICS [Concomitant]

REACTIONS (35)
  - ABDOMINAL PAIN [None]
  - BLOOD CREATININE INCREASED [None]
  - BLOOD ELECTROLYTES ABNORMAL [None]
  - BLOOD PRESSURE DECREASED [None]
  - BLOOD UREA INCREASED [None]
  - BOWEL SOUNDS ABNORMAL [None]
  - BRONCHITIS ACUTE [None]
  - CARDIAC DISORDER [None]
  - CARDIO-RESPIRATORY ARREST [None]
  - CLOSTRIDIAL INFECTION [None]
  - COLONIC PSEUDO-OBSTRUCTION [None]
  - COUGH [None]
  - DEATH [None]
  - DEHYDRATION [None]
  - DIARRHOEA [None]
  - FOREIGN BODY ASPIRATION [None]
  - GASTROINTESTINAL MOTILITY DISORDER [None]
  - HYPOALBUMINAEMIA [None]
  - HYPONATRAEMIA [None]
  - IMMUNE SYSTEM DISORDER [None]
  - INFLUENZA LIKE ILLNESS [None]
  - INTERNATIONAL NORMALISED RATIO INCREASED [None]
  - LUNG INFECTION PSEUDOMONAL [None]
  - MALABSORPTION [None]
  - MALAISE [None]
  - MALNUTRITION [None]
  - NAUSEA [None]
  - PNEUMONIA [None]
  - PULMONARY EMBOLISM [None]
  - PYREXIA [None]
  - STAPHYLOCOCCAL INFECTION [None]
  - VOMITING [None]
  - WEIGHT DECREASED [None]
  - WHEEZING [None]
  - WHITE BLOOD CELL COUNT INCREASED [None]
